FAERS Safety Report 6278287-2 (Version None)
Quarter: 2009Q3

REPORT INFORMATION
  Report Type: 
  Country: None (occurrence: None)
  Receive Date: 20090722
  Receipt Date: 20090714
  Transmission Date: 20100115
  Serious: Yes (Hospitalization)
  Sender: FDA-Public Use
  Company Number: US-AVENTIS-200915147US

PATIENT
  Sex: Female

DRUGS (4)
  1. LOVENOX [Suspect]
     Dates: start: 20090211, end: 20090212
  2. PLAVIX [Suspect]
     Route: 048
     Dates: start: 20030101
  3. COUMADIN [Suspect]
     Dosage: DOSE: UNK
  4. ASPIRIN [Suspect]
     Dosage: DOSE: UNK
     Dates: end: 20090201

REACTIONS (1)
  - INTERNATIONAL NORMALISED RATIO DECREASED [None]
